FAERS Safety Report 4918335-2 (Version None)
Quarter: 2006Q1

REPORT INFORMATION
  Report Type: 
  Country: None (occurrence: None)
  Receive Date: 20060217
  Receipt Date: 20060217
  Transmission Date: 20060701
  Serious: Yes (Hospitalization)
  Sender: FDA-Public Use
  Company Number: None

PATIENT
  Age: 43 Year
  Sex: Male
  Weight: 95 kg

DRUGS (7)
  1. LITHIUM CARBONATE CAP [Suspect]
     Indication: AFFECTIVE DISORDER
     Dosage: 600 MG TWICE DAILY ORAL
     Route: 048
  2. LISINOPRIL [Concomitant]
  3. SIMVASTATIN [Concomitant]
  4. ASPIRIN [Concomitant]
  5. DOCUSATE [Concomitant]
  6. RISPERDAL [Concomitant]
  7. HALOPERIDOL [Concomitant]

REACTIONS (4)
  - CONDITION AGGRAVATED [None]
  - DEPRESSION [None]
  - DIZZINESS [None]
  - URINARY TRACT INFECTION [None]
